FAERS Safety Report 24279935 (Version 1)
Quarter: 2024Q3

REPORT INFORMATION
  Report Type: Spontaneous
  Country: FR (occurrence: FR)
  Receive Date: 20240904
  Receipt Date: 20240904
  Transmission Date: 20241017
  Serious: Yes (Other)
  Sender: AUROBINDO
  Company Number: FR-AFSSAPS-ST2024001333

PATIENT
  Age: 66 Year
  Sex: Male
  Weight: 69.9 kg

DRUGS (4)
  1. CARBOPLATIN [Suspect]
     Active Substance: CARBOPLATIN
     Indication: Lung squamous cell carcinoma stage IV
     Dosage: 1 DOSAGE FORM 3 WEEK (AUC6)
     Route: 042
     Dates: start: 20230727, end: 20230908
  2. PACLITAXEL [Suspect]
     Active Substance: PACLITAXEL
     Indication: Lung squamous cell carcinoma stage IV
     Dosage: 175 MILLIGRAM/SQ. METER 3 WEEK
     Route: 042
     Dates: start: 20230727, end: 20230908
  3. KEYTRUDA [Suspect]
     Active Substance: PEMBROLIZUMAB
     Indication: Lung squamous cell carcinoma stage IV
     Dosage: 200 MILLIGRAM 3 WEEK (C1-C2-C3)
     Route: 042
     Dates: start: 20230727, end: 20230908
  4. KEYTRUDA [Suspect]
     Active Substance: PEMBROLIZUMAB
     Dosage: 200 MILLIGRAM 3 WEEK (MAINTENANCE)
     Route: 042
     Dates: start: 20231017

REACTIONS (2)
  - Fatigue [Recovering/Resolving]
  - Dysphagia [Recovered/Resolved]

NARRATIVE: CASE EVENT DATE: 20230807
